FAERS Safety Report 23423943 (Version 1)
Quarter: 2024Q1

REPORT INFORMATION
  Report Type: Spontaneous
  Country: KR (occurrence: KR)
  Receive Date: 20240119
  Receipt Date: 20240119
  Transmission Date: 20240410
  Serious: Yes (Other)
  Sender: FDA-Public Use
  Company Number: KR-ABBVIE-5581860

PATIENT
  Age: 70 Year
  Sex: Male

DRUGS (5)
  1. OZURDEX [Suspect]
     Active Substance: DEXAMETHASONE
     Indication: Macular oedema
     Dosage: TIME INTERVAL: AS NECESSARY
     Route: 050
  2. OZURDEX [Suspect]
     Active Substance: DEXAMETHASONE
     Dosage: TIME INTERVAL: AS NECESSARY
     Route: 050
  3. OZURDEX [Suspect]
     Active Substance: DEXAMETHASONE
     Dosage: TIME INTERVAL: AS NECESSARY
     Route: 050
  4. OZURDEX [Suspect]
     Active Substance: DEXAMETHASONE
     Dosage: TIME INTERVAL: AS NECESSARY
     Route: 050
  5. OZURDEX [Suspect]
     Active Substance: DEXAMETHASONE
     Dosage: TIME INTERVAL: AS NECESSARY
     Route: 050

REACTIONS (9)
  - Macular oedema [Unknown]
  - Device dislocation [Recovered/Resolved]
  - Visual impairment [Unknown]
  - Macular oedema [Recovered/Resolved]
  - Therapeutic product effect decreased [Unknown]
  - Intraocular pressure increased [Recovered/Resolved]
  - Macular oedema [Recovered/Resolved]
  - Device dislocation [Recovered/Resolved]
  - Macular oedema [Recovered/Resolved]
